FAERS Safety Report 8857557 (Version 3)
Quarter: 2012Q4

REPORT INFORMATION
  Report Type: 
  Country: IT (occurrence: IT)
  Receive Date: 20121024
  Receipt Date: 20121213
  Transmission Date: 20130627
  Serious: Yes (Hospitalization)
  Sender: FDA-Public Use
  Company Number: IT-GLAXOSMITHKLINE-B0839892A

PATIENT
  Age: 47 Year
  Sex: Female

DRUGS (1)
  1. RYTMONORM [Suspect]
     Indication: SUPRAVENTRICULAR EXTRASYSTOLES
     Dosage: 300MG per day
     Route: 048
     Dates: start: 20120320, end: 20120324

REACTIONS (3)
  - Jaundice cholestatic [Recovered/Resolved]
  - Hypertransaminasaemia [Recovered/Resolved]
  - Chromaturia [Unknown]
